FAERS Safety Report 6569681-0 (Version None)
Quarter: 2010Q1

REPORT INFORMATION
  Report Type: 
  Country: None (occurrence: None)
  Receive Date: 20100204
  Receipt Date: 20100125
  Transmission Date: 20100710
  Serious: Yes (Other)
  Sender: FDA-Public Use
  Company Number: PHHY2010GB05609

PATIENT
  Age: 24 Year
  Sex: Male

DRUGS (4)
  1. CLOZAPINE [Suspect]
  2. DEPIXOL [Interacting]
     Indication: SCHIZOPHRENIA
     Dosage: 200 MG, 1/1 WEEK
     Route: 030
  3. DIAZEPAM [Concomitant]
  4. HALOPERIDOL [Concomitant]

REACTIONS (5)
  - AGITATION [None]
  - ASTHMA [None]
  - DRUG INTERACTION [None]
  - HALLUCINATION, AUDITORY [None]
  - WEIGHT DECREASED [None]
